FAERS Safety Report 14881943 (Version 1)
Quarter: 2018Q2

REPORT INFORMATION
  Report Type: Report from Study
  Country: US (occurrence: US)
  Receive Date: 20180511
  Receipt Date: 20180511
  Transmission Date: 20180711
  Serious: Yes (Hospitalization)
  Sender: FDA-Public Use
  Company Number: US-EXELIXIS-CABO-18012945

PATIENT
  Age: 75 Year
  Sex: Male

DRUGS (1)
  1. CABOMETYX [Suspect]
     Active Substance: CABOZANTINIB S-MALATE
     Indication: PRODUCT USED FOR UNKNOWN INDICATION
     Dosage: 60 MG, QD
     Route: 048

REACTIONS (9)
  - Asthenia [Unknown]
  - Chills [Unknown]
  - Blister [Unknown]
  - Rash [Unknown]
  - Bacterial infection [Unknown]
  - Temperature intolerance [Unknown]
  - Dizziness [Unknown]
  - Arthralgia [Unknown]
  - Hot flush [Unknown]

NARRATIVE: CASE EVENT DATE: 20180312
